FAERS Safety Report 4708641-9 (Version None)
Quarter: 2005Q3

REPORT INFORMATION
  Report Type: 
  Country: None (occurrence: None)
  Receive Date: 20050706
  Receipt Date: 20050624
  Transmission Date: 20060218
  Serious: Yes (Other)
  Sender: FDA-Public Use
  Company Number: 2005086990

PATIENT
  Age: 60 Year
  Sex: Female
  Weight: 68.0396 kg

DRUGS (8)
  1. ZYVOX [Suspect]
     Indication: PSEUDOMONAS INFECTION
     Dosage: 100 MG/5 ML; 150 MG, ORAL
     Route: 048
     Dates: start: 20050301, end: 20050301
  2. ZYVOX [Suspect]
     Indication: PSEUDOMONAS INFECTION
     Dosage: INTRAVENOUS
     Route: 042
     Dates: start: 20050301, end: 20050301
  3. CELEBREX [Suspect]
     Indication: RHEUMATOID ARTHRITIS
     Dosage: ORAL
     Route: 048
     Dates: start: 20050301, end: 20050401
  4. KEFLEX [Suspect]
     Indication: PSEUDOMONAS INFECTION
     Dosage: ORAL
     Route: 048
     Dates: start: 20050301, end: 20050301
  5. CIPRO [Suspect]
     Indication: PSEUDOMONAS INFECTION
     Dosage: ORAL
     Route: 048
     Dates: start: 20050301, end: 20050301
  6. ARAVA [Suspect]
     Indication: RHEUMATOID ARTHRITIS
     Dosage: ORAL
     Route: 048
     Dates: start: 20050301, end: 20050401
  7. PREDNISONE [Concomitant]
  8. ALEVE [Concomitant]

REACTIONS (8)
  - DEHYDRATION [None]
  - DIARRHOEA [None]
  - MALAISE [None]
  - OEDEMA PERIPHERAL [None]
  - OPEN WOUND [None]
  - PAIN [None]
  - TREATMENT NONCOMPLIANCE [None]
  - VOMITING [None]
